FAERS Safety Report 20029149 (Version 3)
Quarter: 2021Q4

REPORT INFORMATION
  Report Type: Report from Study
  Country: DE (occurrence: DE)
  Receive Date: 20211103
  Receipt Date: 20211122
  Transmission Date: 20220304
  Serious: Yes (Other)
  Sender: FDA-Public Use
  Company Number: DE-NOVARTISPH-NVSC2021DE248446

PATIENT
  Sex: Female
  Weight: 104 kg

DRUGS (5)
  1. KISQALI [Suspect]
     Active Substance: RIBOCICLIB
     Indication: Breast cancer metastatic
     Dosage: 600 MG (DAILY DOSE), QD (SCHEMA 21 DAYS INTAKE, 7 DAYS PAUSE)
     Route: 048
     Dates: start: 20180825, end: 20191207
  2. KISQALI [Suspect]
     Active Substance: RIBOCICLIB
     Dosage: 600 MG (DAILY DOSE), QD (SCHEMA 21 DAYS INTAKE, 7 DAYS PAUSE)
     Route: 048
     Dates: start: 20200102, end: 20200129
  3. KISQALI [Suspect]
     Active Substance: RIBOCICLIB
     Dosage: 400 MG (DAILY DOSE), QD (SCHEMA 21 DAYS INTAKE, 7 DAYS PAUSE)
     Route: 048
     Dates: start: 20200130, end: 20201028
  4. LETROZOLE [Suspect]
     Active Substance: LETROZOLE
     Indication: Breast cancer metastatic
     Dosage: 2.5 MG, QD (DAILY DOSE)
     Route: 048
     Dates: start: 20180825, end: 20201028
  5. PACLITAXEL [Concomitant]
     Active Substance: PACLITAXEL
     Indication: Product used for unknown indication
     Dosage: 120 MG, QW
     Route: 042
     Dates: start: 20210705, end: 20211026

REACTIONS (1)
  - Polyneuropathy [Not Recovered/Not Resolved]

NARRATIVE: CASE EVENT DATE: 20210809
